FAERS Safety Report 7581562-2 (Version None)
Quarter: 2011Q2

REPORT INFORMATION
  Report Type: 
  Country: None (occurrence: None)
  Receive Date: 20110629
  Receipt Date: 20110622
  Transmission Date: 20111010
  Serious: Yes (Hospitalization)
  Sender: FDA-Public Use
  Company Number: PHFR2011GB02158

PATIENT
  Sex: Female

DRUGS (7)
  1. PROMETHAZINE [Concomitant]
     Indication: SCHIZOPHRENIA
     Dosage: 50 MG, UNK
     Route: 048
  2. PROCYCLIDINE HYDROCHLORIDE 2MG TAB [Concomitant]
     Indication: EXTRAPYRAMIDAL DISORDER
     Dosage: 20 MG, UNK
     Route: 048
  3. DEPAKOTE [Concomitant]
     Indication: SCHIZOPHRENIA
     Dosage: 2000 MG, UNK
     Route: 048
  4. CLOZAPINE [Suspect]
     Indication: SCHIZOPHRENIA
     Dosage: 750 MG, UNK
     Route: 048
     Dates: start: 20090529
  5. ZUCLOPENTHIXOL [Concomitant]
     Indication: SCHIZOPHRENIA
     Dosage: 50 MG, UNK
     Route: 048
  6. ACETAMINOPHEN [Concomitant]
     Dosage: 1000 MG, UNK
     Route: 048
  7. LANSOPRAZOLE [Concomitant]
     Dosage: 30 MG, UNK
     Route: 048

REACTIONS (2)
  - LUNG ADENOCARCINOMA RECURRENT [None]
  - DIFFERENTIAL WHITE BLOOD CELL COUNT ABNORMAL [None]
